FAERS Safety Report 7297485-2 (Version None)
Quarter: 2011Q1

REPORT INFORMATION
  Report Type: 
  Country: None (occurrence: None)
  Receive Date: 20110216
  Receipt Date: 20110208
  Transmission Date: 20110831
  Serious: Yes (Hospitalization)
  Sender: FDA-Public Use
  Company Number: KR-ELI_LILLY_AND_COMPANY-KR201102001935

PATIENT
  Age: 70 Year
  Sex: Male
  Weight: 66 kg

DRUGS (1)
  1. HUMALOG MIX 75/25 [Suspect]
     Indication: TYPE 2 DIABETES MELLITUS
     Dosage: 22 U, 2/D
     Route: 058
     Dates: start: 20101125

REACTIONS (1)
  - CHOLELITHIASIS [None]
